FAERS Safety Report 20151643 (Version 5)
Quarter: 2022Q2

REPORT INFORMATION
  Report Type: Spontaneous
  Country: US (occurrence: US)
  Receive Date: 20211206
  Receipt Date: 20220606
  Transmission Date: 20220720
  Serious: Yes (Hospitalization, Disabling, Other)
  Sender: FDA-Public Use
  Company Number: US-BAYER-2021A256582

PATIENT
  Age: 71 Year
  Sex: Female
  Weight: 166 kg

DRUGS (5)
  1. ALEVE [Suspect]
     Active Substance: NAPROXEN SODIUM
     Indication: Arthralgia
     Dosage: UNK UNK, QD
     Route: 048
     Dates: start: 2013, end: 2016
  2. ALEVE [Suspect]
     Active Substance: NAPROXEN SODIUM
     Indication: Pain
  3. PRILOSEC [Concomitant]
     Active Substance: OMEPRAZOLE MAGNESIUM
  4. VITAMINS [Concomitant]
     Active Substance: VITAMINS
  5. THYROID [Concomitant]
     Active Substance: LEVOTHYROXINE\LIOTHYRONINE

REACTIONS (22)
  - Chronic kidney disease [Recovering/Resolving]
  - Cerebrovascular accident [Recovering/Resolving]
  - Peripheral swelling [Not Recovered/Not Resolved]
  - Neuropathy peripheral [None]
  - Monoparesis [Unknown]
  - Motor dysfunction [Recovering/Resolving]
  - Oedema peripheral [Unknown]
  - Incorrect product administration duration [None]
  - Incorrect dose administered [None]
  - Glomerulonephritis membranous [Not Recovered/Not Resolved]
  - Oedema [Not Recovered/Not Resolved]
  - Swollen tongue [None]
  - Lip swelling [None]
  - Blood cholesterol increased [Recovered/Resolved]
  - Thyroid disorder [None]
  - Protein total decreased [Not Recovered/Not Resolved]
  - Renal disorder [None]
  - Renal injury [Not Recovered/Not Resolved]
  - Scab [Not Recovered/Not Resolved]
  - Pruritus [Not Recovered/Not Resolved]
  - Mobility decreased [Not Recovered/Not Resolved]
  - Proteinuria [Not Recovered/Not Resolved]

NARRATIVE: CASE EVENT DATE: 20130101
